FAERS Safety Report 5824171-5 (Version None)
Quarter: 2008Q3

REPORT INFORMATION
  Report Type: 
  Country: None (occurrence: None)
  Receive Date: 20080722
  Receipt Date: 20080715
  Transmission Date: 20090109
  Serious: Yes (Other)
  Sender: FDA-Public Use
  Company Number: 2008SP011951

PATIENT
  Age: 39 Year
  Sex: Female

DRUGS (2)
  1. PEG-INTRON [Suspect]
     Indication: HEPATITIS C
     Dosage: 96 MCG;QW;SC
     Route: 058
     Dates: start: 20080328
  2. RIBAVIRIN [Suspect]
     Indication: HEPATITIS C
     Dosage: 800 MG;QD;PO
     Route: 048
     Dates: start: 20080328

REACTIONS (7)
  - ANGER [None]
  - ANURIA [None]
  - DECREASED APPETITE [None]
  - DEHYDRATION [None]
  - INJECTION SITE ERYTHEMA [None]
  - NAUSEA [None]
  - VOMITING [None]
